FAERS Safety Report 13707197 (Version 1)
Quarter: 2017Q2

REPORT INFORMATION
  Report Type: Spontaneous
  Country: US (occurrence: US)
  Receive Date: 20170630
  Receipt Date: 20170630
  Transmission Date: 20170830
  Serious: No
  Sender: FDA-Public Use
  Company Number: US-IPSEN BIOPHARMACEUTICALS, INC.-2015-4750

PATIENT
  Age: 39 Year
  Sex: Female
  Weight: 77 kg

DRUGS (3)
  1. ANTI ANXIETY [Concomitant]
     Indication: ANXIETY
     Dosage: NOT REPORTED
     Route: 065
  2. SOMATULINE DEPOT [Suspect]
     Active Substance: LANREOTIDE ACETATE
     Indication: ACROMEGALY
     Dosage: 90MG
     Route: 058
     Dates: start: 201412
  3. ANTI DEPRESSANTS [Concomitant]
     Active Substance: UNSPECIFIED INGREDIENT
     Indication: DEPRESSION
     Dosage: NOT REPORTED
     Route: 065

REACTIONS (3)
  - Blood follicle stimulating hormone increased [Unknown]
  - Amenorrhoea [None]
  - Feeling cold [Not Recovered/Not Resolved]

NARRATIVE: CASE EVENT DATE: 2015
